FAERS Safety Report 10593455 (Version 1)
Quarter: 2014Q4

REPORT INFORMATION
  Report Type: Spontaneous
  Country: US (occurrence: None)
  Receive Date: 20141118
  Receipt Date: 20141118
  Transmission Date: 20150529
  Serious: Yes (Life-Threatening)
  Sender: FDA-Public Use
  Company Number: None

PATIENT
  Age: 23 Year
  Sex: Male

DRUGS (1)
  1. CHLORHEXIDINE GLUCONATE. [Suspect]
     Active Substance: CHLORHEXIDINE GLUCONATE
     Indication: GINGIVITIS
     Dosage: 1 PINT  TWO CAPS  TWICE DAILY, WHEN I WAKE UP AND WHEN I GO TO BED BY MOUTH
     Route: 048
     Dates: start: 20140717, end: 20140801

REACTIONS (2)
  - Choking [None]
  - Throat tightness [None]

NARRATIVE: CASE EVENT DATE: 20140717
